FAERS Safety Report 9517947 (Version 1)
Quarter: 2013Q1

REPORT INFORMATION
  Report Type: Spontaneous
  Country: US (occurrence: None)
  Receive Date: 20130305
  Receipt Date: 20130305
  Transmission Date: 20140127
  Serious: Yes (Other)
  Sender: FDA-Public Use
  Company Number: 163-21880-12022249

PATIENT
  Age: 72 Year
  Sex: Male

DRUGS (9)
  1. REVLIMID [Suspect]
     Indication: IRON OVERLOAD
     Dosage: 10 MG, 1 IN 1 D, PO
     Route: 048
     Dates: start: 200811, end: 2009
  2. EXJADE [Suspect]
     Dosage: 1500 MG, DAILY, PO
     Route: 048
     Dates: start: 20120123
  3. DACOGEN (DECITABINE) [Concomitant]
  4. ASA (ACETYLSALICYLIC ACID) [Concomitant]
  5. PLAVIX (CLOPIDOGREL SULFATE) [Concomitant]
  6. TRANSFUSION (BLOOD TRANSFUSION, AUXILIARY PRODUCTS) [Concomitant]
  7. NORVASC (AMLODIPINE BESILATE) [Concomitant]
  8. METOPROLOL (METOPROLOL) [Concomitant]
  9. TOPROL XL (METOPROLOL SUCCINATE) [Concomitant]

REACTIONS (4)
  - Thrombocytopenia [None]
  - Joint swelling [None]
  - Pruritus [None]
  - Diarrhoea [None]
